FAERS Safety Report 6043431-9 (Version None)
Quarter: 2009Q1

REPORT INFORMATION
  Report Type: 
  Country: None (occurrence: None)
  Receive Date: 20090115
  Receipt Date: 20081230
  Transmission Date: 20090719
  Serious: Yes (Hospitalization)
  Sender: FDA-Public Use
  Company Number: 8040805

PATIENT
  Age: 19 Year
  Sex: Male
  Weight: 90.2 kg

DRUGS (3)
  1. CIMZIA [Suspect]
     Indication: CROHN'S DISEASE
     Dosage: 400 MG SC
     Route: 058
     Dates: start: 20081124
  2. PREDNISONE [Concomitant]
  3. PREVACID [Concomitant]

REACTIONS (3)
  - ABSCESS INTESTINAL [None]
  - INJECTION SITE RASH [None]
  - RASH ERYTHEMATOUS [None]
